FAERS Safety Report 8034443-4 (Version None)
Quarter: 2012Q1

REPORT INFORMATION
  Report Type: 
  Country: None (occurrence: None)
  Receive Date: 20120110
  Receipt Date: 20120105
  Transmission Date: 20120608
  Serious: Yes (Hospitalization, Other)
  Sender: FDA-Public Use
  Company Number: US-PFIZER INC-2012004174

PATIENT
  Sex: Female
  Weight: 90.703 kg

DRUGS (4)
  1. ALPRAZOLAM [Suspect]
     Indication: ANXIETY
     Dosage: UNK
  2. CYTOMEL [Concomitant]
     Indication: THYROID DISORDER
     Dosage: UNK
  3. XANAX [Suspect]
     Indication: ANXIETY
     Dosage: 1 MG, 2X/DAY
     Route: 048
     Dates: start: 19820101
  4. SYNTHROID [Concomitant]
     Indication: THYROID DISORDER
     Dosage: UNK

REACTIONS (5)
  - SCAR EXCISION [None]
  - CAESAREAN SECTION [None]
  - ANXIETY [None]
  - PAIN IN EXTREMITY [None]
  - PAIN [None]
